FAERS Safety Report 22280221 (Version 1)
Quarter: 2023Q2

REPORT INFORMATION
  Report Type: Spontaneous
  Country: NL (occurrence: NL)
  Receive Date: 20230503
  Receipt Date: 20230503
  Transmission Date: 20230722
  Serious: Yes (Hospitalization, Other)
  Sender: FDA-Public Use
  Company Number: NL-INSUD PHARMA-2304NL02596

PATIENT

DRUGS (4)
  1. ACYCLOVIR [Interacting]
     Active Substance: ACYCLOVIR
     Indication: Herpes simplex encephalitis
     Dosage: 10 MILLIGRAM/KILOGRAM, BID
     Route: 065
  2. ACYCLOVIR [Interacting]
     Active Substance: ACYCLOVIR
     Dosage: 400 MILLIGRAM, BID
     Route: 065
  3. ACYCLOVIR [Interacting]
     Active Substance: ACYCLOVIR
     Dosage: 250 MILLIGRAM, BID
     Route: 065
  4. MYCOPHENOLATE MOFETIL [Interacting]
     Active Substance: MYCOPHENOLATE MOFETIL
     Indication: Prophylaxis against transplant rejection
     Dosage: 750 MILLIGRAM, BID
     Route: 065

REACTIONS (5)
  - Neurotoxicity [Recovering/Resolving]
  - Myoclonus [Recovered/Resolved]
  - Confusional state [Not Recovered/Not Resolved]
  - Overdose [Recovering/Resolving]
  - Drug interaction [Recovering/Resolving]
